FAERS Safety Report 5518698-3 (Version None)
Quarter: 2007Q4

REPORT INFORMATION
  Report Type: 
  Country: None (occurrence: None)
  Receive Date: 20071115
  Receipt Date: 20071112
  Transmission Date: 20080405
  Serious: Yes (Hospitalization)
  Sender: FDA-Public Use
  Company Number: US-SHR-US-2007-020509

PATIENT
  Age: 58 Year
  Sex: Female

DRUGS (3)
  1. BETASERON [Suspect]
     Indication: RELAPSING-REMITTING MULTIPLE SCLEROSIS
     Route: 058
     Dates: start: 19940317, end: 20060130
  2. BETASERON [Suspect]
     Dosage: 8 MIU, EVERY 2D
     Route: 058
     Dates: start: 20060202
  3. DILAUDID [Suspect]
     Dates: start: 20030101

REACTIONS (4)
  - BONE DISORDER [None]
  - DELUSIONAL DISORDER, UNSPECIFIED TYPE [None]
  - FALL [None]
  - HIP FRACTURE [None]
